FAERS Safety Report 6673412-3 (Version None)
Quarter: 2010Q2

REPORT INFORMATION
  Report Type: 
  Country: None (occurrence: None)
  Receive Date: 20100408
  Receipt Date: 20100329
  Transmission Date: 20101027
  Serious: Yes (Other)
  Sender: FDA-Public Use
  Company Number: US-PFIZER INC-2010032936

PATIENT
  Sex: Male

DRUGS (1)
  1. CHANTIX [Suspect]

REACTIONS (6)
  - CONFUSIONAL STATE [None]
  - HYPERSENSITIVITY [None]
  - LETHARGY [None]
  - OEDEMA MOUTH [None]
  - PALLOR [None]
  - PULSE ABNORMAL [None]
